FAERS Safety Report 14768714 (Version 1)
Quarter: 2018Q2

REPORT INFORMATION
  Report Type: Spontaneous
  Country: US (occurrence: US)
  Receive Date: 20180417
  Receipt Date: 20180417
  Transmission Date: 20180711
  Serious: Yes (Other)
  Sender: FDA-Public Use
  Company Number: US-LEUCADIA PHARMACEUTICALS-2018LEU00001

PATIENT
  Age: 66 Year
  Sex: Male

DRUGS (9)
  1. PENTOBARBITAL SODIUM. [Suspect]
     Active Substance: PENTOBARBITAL SODIUM
     Indication: MEDICAL INDUCTION OF COMA
     Dosage: 5 MG/KG, ONCE
     Route: 065
  2. ACYCLOVIR. [Concomitant]
     Active Substance: ACYCLOVIR
     Route: 065
  3. PHENYTOIN. [Suspect]
     Active Substance: PHENYTOIN
     Indication: STATUS EPILEPTICUS
     Dosage: 100 MG, EVERY 8 HOURS
     Route: 042
  4. PENTOBARBITAL SODIUM. [Suspect]
     Active Substance: PENTOBARBITAL SODIUM
     Indication: STATUS EPILEPTICUS
     Dosage: 1 MG/KG/HOUR CONTINUOUS
     Route: 065
  5. PENTOBARBITAL SODIUM. [Suspect]
     Active Substance: PENTOBARBITAL SODIUM
     Dosage: 0.5 MG/KG/HOUR CONTINUOUS
     Route: 065
  6. MIDAZOLAM [Concomitant]
     Active Substance: MIDAZOLAM HYDROCHLORIDE
     Route: 065
  7. VANCOMYCIN [Concomitant]
     Active Substance: VANCOMYCIN
     Route: 065
  8. AMPICILLIN [Concomitant]
     Active Substance: AMPICILLIN
     Route: 065
  9. CEFTRIAXONE. [Concomitant]
     Active Substance: CEFTRIAXONE
     Route: 065

REACTIONS (1)
  - Lactic acidosis [Recovered/Resolved]
